FAERS Safety Report 5164762-0 (Version None)
Quarter: 2006Q4

REPORT INFORMATION
  Report Type: 
  Country: None (occurrence: None)
  Receive Date: 20061205
  Receipt Date: 20061127
  Transmission Date: 20070319
  Serious: Yes (Other)
  Sender: FDA-Public Use
  Company Number: FR-GLAXOSMITHKLINE-B0448823A

PATIENT
  Age: 72 Year
  Sex: Male
  Weight: 80 kg

DRUGS (5)
  1. ROPINIROLE HCL [Suspect]
     Indication: PARKINSON'S DISEASE
     Route: 048
     Dates: start: 20061024
  2. MODOPAR [Concomitant]
     Indication: PARKINSON'S DISEASE
     Dosage: 125MG THREE TIMES PER DAY
     Route: 048
     Dates: start: 20030101
  3. PREVISCAN [Concomitant]
     Indication: ARRHYTHMIA
     Dosage: 5MG PER DAY
     Route: 048
     Dates: start: 20040101
  4. FLECAINIDE ACETATE [Concomitant]
     Indication: ARRHYTHMIA
     Dosage: 100MG PER DAY
     Route: 048
     Dates: start: 20040101
  5. BISOPROLOL FUMARATE [Concomitant]
     Dosage: 1TAB PER DAY
     Dates: end: 20061123

REACTIONS (1)
  - HYPERTENSION [None]
